FAERS Safety Report 20537315 (Version 35)
Quarter: 2022Q4

REPORT INFORMATION
  Report Type: Report from Study
  Country: BR (occurrence: None)
  Receive Date: 20220302
  Receipt Date: 20221108
  Transmission Date: 20230112
  Serious: Yes (Life-Threatening, Hospitalization)
  Sender: FDA-Public Use
  Company Number: BR-Eisai Medical Research-EC-2022-109689

PATIENT
  Age: 70 Year
  Sex: Female
  Weight: 48.3 kg

DRUGS (10)
  1. LENVATINIB [Suspect]
     Active Substance: LENVATINIB
     Indication: Renal cell carcinoma
     Route: 048
     Dates: start: 20211022, end: 20220216
  2. BELZUTIFAN [Suspect]
     Active Substance: BELZUTIFAN
     Indication: Renal cell carcinoma
     Dosage: STARTING DOSE AT 120 MILLIGRAM; FLUCTUATED DOSAGE
     Route: 048
     Dates: start: 20211022, end: 20220125
  3. BELZUTIFAN [Suspect]
     Active Substance: BELZUTIFAN
     Dosage: STARTING DOSE AT 80 MILLIGRAM; FLUCTUATED DOSAGE
     Route: 048
     Dates: start: 20220408
  4. ATENOLOL [Concomitant]
     Active Substance: ATENOLOL
     Dates: start: 201512, end: 20220222
  5. ACETAMINOPHEN [Concomitant]
     Active Substance: ACETAMINOPHEN
     Dates: start: 201812
  6. PURAN [Concomitant]
     Active Substance: LEVOTHYROXINE SODIUM
     Dates: start: 20200602, end: 20220225
  7. ACETAMINOPHEN\CODEINE PHOSPHATE [Concomitant]
     Active Substance: ACETAMINOPHEN\CODEINE PHOSPHATE
     Dates: start: 20211210, end: 20220314
  8. DIMENHYDRINATE\PYRIDOXINE HYDROCHLORIDE [Concomitant]
     Active Substance: DIMENHYDRINATE\PYRIDOXINE HYDROCHLORIDE
     Dates: start: 20220208, end: 202202
  9. METOCLOPRAMIDE HYDROCHLORIDE [Concomitant]
     Active Substance: METOCLOPRAMIDE HYDROCHLORIDE
     Dates: start: 20220208, end: 202203
  10. CEFALIV [Concomitant]
     Dates: start: 20220211, end: 20220314

REACTIONS (2)
  - Hypertensive crisis [Recovered/Resolved]
  - Hypertensive encephalopathy [Recovered/Resolved]

NARRATIVE: CASE EVENT DATE: 20220222
